FAERS Safety Report 5415762-4 (Version None)
Quarter: 2007Q3

REPORT INFORMATION
  Report Type: 
  Country: None (occurrence: None)
  Receive Date: 20070731
  Receipt Date: 20070604
  Transmission Date: 20080115
  Serious: No
  Sender: FDA-Public Use
  Company Number: US200706000573

PATIENT
  Age: 63 Year
  Sex: Male

DRUGS (4)
  1. BYETTA [Suspect]
     Indication: TYPE 2 DIABETES MELLITUS
     Dosage: 5 UG,2/D,SUBCUTANEOUS ; 10 UG,2/D,SUBCUTANEOUS
     Route: 058
     Dates: start: 20070101, end: 20070201
  2. BYETTA [Suspect]
     Indication: TYPE 2 DIABETES MELLITUS
     Dosage: 5 UG,2/D,SUBCUTANEOUS ; 10 UG,2/D,SUBCUTANEOUS
     Route: 058
     Dates: start: 20070201
  3. INSULIN (INSULIN) [Concomitant]
  4. METFORMIN HCL [Concomitant]

REACTIONS (3)
  - BLOOD GLUCOSE DECREASED [None]
  - HYPERHIDROSIS [None]
  - MALAISE [None]
